FAERS Safety Report 9726754 (Version 2)
Quarter: 2013Q4

REPORT INFORMATION
  Report Type: Spontaneous
  Country: JP (occurrence: JP)
  Receive Date: 20131203
  Receipt Date: 20131210
  Transmission Date: 20140711
  Serious: Yes (Hospitalization)
  Sender: FDA-Public Use
  Company Number: PHHY2013JP138675

PATIENT
  Age: 63 Year
  Sex: Female

DRUGS (3)
  1. TEGRETOL [Suspect]
     Indication: TRIGEMINAL NEURALGIA
     Route: 048
  2. CELECOX [Suspect]
     Route: 048
  3. CALONAL [Suspect]
     Indication: PAIN

REACTIONS (9)
  - Hepatic function abnormal [Unknown]
  - Stevens-Johnson syndrome [Recovering/Resolving]
  - Rash generalised [Recovering/Resolving]
  - Pyrexia [Recovering/Resolving]
  - Oropharyngeal pain [Recovering/Resolving]
  - Oral pain [Recovering/Resolving]
  - Erythema [Recovering/Resolving]
  - Ocular hyperaemia [Recovering/Resolving]
  - Oral disorder [Recovering/Resolving]
